FAERS Safety Report 7357040-2 (Version None)
Quarter: 2011Q1

REPORT INFORMATION
  Report Type: 
  Country: None (occurrence: None)
  Receive Date: 20110308
  Receipt Date: 20110225
  Transmission Date: 20110831
  Serious: Yes (Hospitalization, Other)
  Sender: FDA-Public Use
  Company Number: 2010JP006869

PATIENT
  Age: 29 Year
  Sex: Male
  Weight: 63 kg

DRUGS (10)
  1. COTRIM [Concomitant]
  2. PREDONINE (REDNISOLONE) [Concomitant]
  3. OMEPRAZOLE [Concomitant]
  4. VALTREX [Concomitant]
  5. PREDNISOLONE [Concomitant]
  6. ITRIZOLE (ITRACONAZOLE) [Concomitant]
  7. GLYCYRON (AMINOACETIC ACID, DL-METHIONINE, GLYCYRRHIZIC ACID) [Concomitant]
  8. PROGRAF [Suspect]
     Indication: COMPRESSION FRACTURE
     Dosage: 0.2 MG, BID, ORAL
     Route: 048
     Dates: start: 20100826, end: 20101020
  9. PROGRAF [Suspect]
     Indication: GRAFT VERSUS HOST DISEASE
     Dosage: 0.2 MG, BID, ORAL
     Route: 048
     Dates: start: 20100826, end: 20101020
  10. URSO 250 [Concomitant]

REACTIONS (3)
  - CONVULSION [None]
  - SPINAL COMPRESSION FRACTURE [None]
  - ALTERED STATE OF CONSCIOUSNESS [None]
